FAERS Safety Report 10089697 (Version 1)
Quarter: 2014Q2

REPORT INFORMATION
  Report Type: Spontaneous
  Country: US (occurrence: US)
  Receive Date: 20140421
  Receipt Date: 20140421
  Transmission Date: 20141212
  Serious: No
  Sender: FDA-Public Use
  Company Number: US-PFIZER INC-2014109688

PATIENT
  Sex: Male

DRUGS (4)
  1. LYRICA [Suspect]
     Indication: FIBROMYALGIA
     Dosage: 25 MG, 3X/DAY
     Dates: start: 2014, end: 2014
  2. LYRICA [Suspect]
     Dosage: 50 MG, UNK
     Dates: start: 2014, end: 2014
  3. LYRICA [Suspect]
     Dosage: 75 MG, UNK
     Dates: start: 2014, end: 2014
  4. LYRICA [Suspect]
     Dosage: 100 MG, 3X/DAY
     Dates: start: 201404

REACTIONS (1)
  - Drug ineffective [Unknown]
